FAERS Safety Report 15996593 (Version 1)
Quarter: 2019Q1

REPORT INFORMATION
  Report Type: Report from Study
  Country: IT (occurrence: IT)
  Receive Date: 20190222
  Receipt Date: 20190222
  Transmission Date: 20190418
  Serious: Yes (Hospitalization)
  Sender: FDA-Public Use
  Company Number: IT-PFIZER INC-2019074767

PATIENT
  Sex: Male
  Weight: 68 kg

DRUGS (12)
  1. CYCLOPHOSPHAMIDE. [Concomitant]
     Active Substance: CYCLOPHOSPHAMIDE
     Dosage: UNK (AS PART OF THE 5 CYCLE R-CHOP)
     Dates: start: 20180620, end: 20181006
  2. DEXAMETHASONE. [Concomitant]
     Active Substance: DEXAMETHASONE
     Dosage: AS PART OF R-DHAOX, CYCLE 1
     Dates: start: 20181107, end: 20181110
  3. CYTARABINE. [Suspect]
     Active Substance: CYTARABINE
     Dosage: AS PART OF IVAC
     Dates: start: 20181129, end: 20181203
  4. RITUXIMAB. [Suspect]
     Active Substance: RITUXIMAB
     Dosage: R-DHAOX, CYCLE 1
     Route: 065
     Dates: start: 20181107, end: 20181110
  5. RITUXIMAB. [Suspect]
     Active Substance: RITUXIMAB
     Dosage: R-CHOP 5 CYCLES
     Route: 065
     Dates: start: 20180620, end: 20181006
  6. PREDNISONE. [Concomitant]
     Active Substance: PREDNISONE
     Dosage: AS PART OF THE 5 CYCLE R-CHOP
     Dates: start: 20180620, end: 20181006
  7. ETOPOSIDE. [Suspect]
     Active Substance: ETOPOSIDE
     Dosage: AS PART OF IVAC
     Dates: start: 20181129, end: 20181203
  8. DOXORUBICIN HYDROCHLORIDE. [Concomitant]
     Active Substance: DOXORUBICIN HYDROCHLORIDE
     Dosage: AS PART OF THE 5 CYCLE R-CHOP
     Dates: start: 20180620, end: 20181006
  9. IFOSFAMIDE. [Suspect]
     Active Substance: IFOSFAMIDE
     Dosage: AS PART OF IVAC
     Dates: start: 20181129, end: 20181203
  10. VINCRISTINE SULFATE. [Concomitant]
     Active Substance: VINCRISTINE SULFATE
     Dosage: AS PART OF THE 5 CYCLE R-CHOP
     Dates: start: 20180620, end: 20181006
  11. CYTARABINE. [Concomitant]
     Active Substance: CYTARABINE
     Dosage: AS PART OF R-DHAOX, CYCLE 1
     Dates: start: 20181107, end: 20181110
  12. OXALIPLATIN. [Concomitant]
     Active Substance: OXALIPLATIN
     Dosage: AS PART OF R-DHAOX, CYCLE 1
     Dates: start: 20181107, end: 20181110

REACTIONS (2)
  - Pyrexia [Recovered/Resolved]
  - Pancytopenia [Recovered/Resolved]

NARRATIVE: CASE EVENT DATE: 20181210
